FAERS Safety Report 4925783-3 (Version None)
Quarter: 2006Q1

REPORT INFORMATION
  Report Type: 
  Country: None (occurrence: None)
  Receive Date: 20060228
  Receipt Date: 20050321
  Transmission Date: 20060701
  Serious: Yes (Hospitalization)
  Sender: FDA-Public Use
  Company Number: US-GLAXOSMITHKLINE-A0550668A

PATIENT
  Age: 45 Year
  Sex: Female
  Weight: 62.7 kg

DRUGS (3)
  1. LAMICTAL [Suspect]
     Indication: BIPOLAR DISORDER
     Route: 048
     Dates: start: 20050113, end: 20050224
  2. TRAZODONE [Concomitant]
     Indication: DEPRESSION
     Dosage: 200MG AT NIGHT
     Route: 048
  3. XANAX [Concomitant]
     Indication: ANXIETY
     Dosage: 4MG AS REQUIRED
     Route: 048

REACTIONS (2)
  - ORAL MUCOSAL BLISTERING [None]
  - STEVENS-JOHNSON SYNDROME [None]
